FAERS Safety Report 5189689-X (Version None)
Quarter: 2006Q4

REPORT INFORMATION
  Report Type: 
  Country: None (occurrence: None)
  Receive Date: 20061215
  Receipt Date: 20061205
  Transmission Date: 20070319
  Serious: Yes (Hospitalization)
  Sender: FDA-Public Use
  Company Number: 233476

PATIENT
  Age: 50 Year
  Sex: Female

DRUGS (1)
  1. HERCEPTIN [Suspect]
     Indication: BREAST CANCER METASTATIC
     Dosage: 4 MG/KG, 1/WEEK, INTRAVENOUS
     Route: 042

REACTIONS (6)
  - CHILLS [None]
  - DISEASE RECURRENCE [None]
  - HYPOXIA [None]
  - INFUSION RELATED REACTION [None]
  - PYREXIA [None]
  - URINARY INCONTINENCE [None]
